FAERS Safety Report 20574054 (Version 2)
Quarter: 2022Q1

REPORT INFORMATION
  Report Type: Spontaneous
  Country: US (occurrence: US)
  Receive Date: 20220309
  Receipt Date: 20220331
  Transmission Date: 20220424
  Serious: No
  Sender: FDA-Public Use
  Company Number: US-PFIZER INC-202200318064

PATIENT
  Age: 69 Year
  Sex: Female
  Weight: 56.7 kg

DRUGS (2)
  1. PREMARIN [Suspect]
     Active Substance: ESTROGENS, CONJUGATED
     Dosage: 0.5 G, 2X/WEEK (INSERT ONE HALF GRAM TWICE WEEKLY, MAKES IT ONE GRAM WEEKLY)
     Route: 067
  2. PREMARIN [Suspect]
     Active Substance: ESTROGENS, CONJUGATED
     Dosage: 0.5 G (2-3 TIMES WEEKLY)
     Route: 067

REACTIONS (2)
  - Memory impairment [Unknown]
  - Off label use [Unknown]
